FAERS Safety Report 7377533-1 (Version None)
Quarter: 2011Q1

REPORT INFORMATION
  Report Type: 
  Country: None (occurrence: None)
  Receive Date: 20110328
  Receipt Date: 20110228
  Transmission Date: 20110831
  Serious: No
  Sender: FDA-Public Use
  Company Number: US-B.I. PHARMACEUTICALS,INC./RIDGEFIELD-2011-BP-07206BP

PATIENT
  Sex: Female

DRUGS (1)
  1. MIRAPEX [Suspect]
     Indication: PARKINSON'S DISEASE
     Dosage: 0.125 MG
     Route: 048
     Dates: start: 20110101

REACTIONS (4)
  - ASTHENIA [None]
  - TREMOR [None]
  - JOINT STIFFNESS [None]
  - DISORIENTATION [None]
